FAERS Safety Report 8066415-8 (Version None)
Quarter: 2012Q1

REPORT INFORMATION
  Report Type: 
  Country: None (occurrence: None)
  Receive Date: 20120124
  Receipt Date: 20120124
  Transmission Date: 20120608
  Serious: Yes (Life-Threatening, Hospitalization)
  Sender: FDA-Public Use
  Company Number: None

PATIENT
  Age: 46 Year
  Sex: Female
  Weight: 56.699 kg

DRUGS (2)
  1. SERTRALINE HYDROCHLORIDE [Concomitant]
     Route: 048
  2. PROMETHAZINE [Suspect]
     Indication: NAUSEA
     Dosage: 25 MG
     Route: 048
     Dates: start: 20120122, end: 20120122

REACTIONS (4)
  - DEPRESSED LEVEL OF CONSCIOUSNESS [None]
  - MUSCLE RIGIDITY [None]
  - BLOOD GLUCOSE INCREASED [None]
  - BLOOD PRESSURE DECREASED [None]
